FAERS Safety Report 12755261 (Version 5)
Quarter: 2017Q3

REPORT INFORMATION
  Report Type: Spontaneous
  Country: JP (occurrence: JP)
  Receive Date: 20160916
  Receipt Date: 20170928
  Transmission Date: 20171127
  Serious: Yes (Death, Other)
  Sender: FDA-Public Use
  Company Number: PHHY2016JP126786

PATIENT
  Age: 48 Year
  Sex: Male
  Weight: 54 kg

DRUGS (2)
  1. ZOMETA [Suspect]
     Active Substance: ZOLEDRONIC ACID
     Indication: METASTASES TO BONE
     Dosage: 4 MG, UNK
     Route: 041
     Dates: start: 20070611, end: 20081001
  2. ZOMETA [Suspect]
     Active Substance: ZOLEDRONIC ACID
     Indication: NASOPHARYNGEAL CANCER

REACTIONS (12)
  - Malignant pleural effusion [Fatal]
  - Mouth swelling [Unknown]
  - Purulence [Unknown]
  - Respiratory failure [Fatal]
  - Depressed level of consciousness [Fatal]
  - Osteonecrosis of jaw [Not Recovered/Not Resolved]
  - Exposed bone in jaw [Unknown]
  - Oral mucosal erythema [Unknown]
  - Hypercapnia [Fatal]
  - Feeding disorder [Unknown]
  - Bone disorder [Unknown]
  - Pain [Unknown]

NARRATIVE: CASE EVENT DATE: 20080806
